FAERS Safety Report 21688221 (Version 1)
Quarter: 2022Q4

REPORT INFORMATION
  Report Type: Spontaneous
  Country: US (occurrence: None)
  Receive Date: 20221205
  Receipt Date: 20221205
  Transmission Date: 20230112
  Serious: No
  Sender: FDA-Public Use
  Company Number: None

PATIENT
  Age: 14 Year
  Sex: Female
  Weight: 36.4 kg

DRUGS (12)
  1. ABATACEPT [Suspect]
     Active Substance: ABATACEPT
     Dosage: OTHER FREQUENCY : 8 DOSES IN TOTAL;?
     Route: 042
     Dates: start: 20220622, end: 20221121
  2. ATOVAQUONE [Concomitant]
     Active Substance: ATOVAQUONE
     Dates: start: 20220616
  3. FOLIC ACID [Concomitant]
     Active Substance: FOLIC ACID
     Dates: start: 20220616
  4. FOSCARNET [Concomitant]
     Active Substance: FOSCARNET
     Dates: start: 20220813
  5. HYDROCORTISONE [Concomitant]
     Active Substance: HYDROCORTISONE
     Dates: start: 20220919
  6. LEVOFLOXACIN [Concomitant]
     Active Substance: LEVOFLOXACIN
  7. OMEPRAZOLE [Concomitant]
     Active Substance: OMEPRAZOLE
     Dates: start: 20220724
  8. OXYCODONE [Concomitant]
     Active Substance: OXYCODONE
     Dates: start: 20220725
  9. PENICILLIN V POTASSIUM [Concomitant]
     Active Substance: PENICILLIN V POTASSIUM
     Dates: start: 20220708
  10. POTASSIUM CHLORIDE [Concomitant]
     Active Substance: POTASSIUM CHLORIDE
     Dates: start: 20221003
  11. SIROLIMUS [Concomitant]
     Active Substance: SIROLIMUS
     Dates: start: 20220912
  12. VORICONAZOLE [Concomitant]
     Active Substance: VORICONAZOLE
     Dates: start: 20220624

REACTIONS (1)
  - Drug monitoring procedure not performed [None]

NARRATIVE: CASE EVENT DATE: 20221130
